FAERS Safety Report 10817551 (Version 1)
Quarter: 2015Q1

REPORT INFORMATION
  Report Type: Spontaneous
  Country: US (occurrence: US)
  Receive Date: 20150218
  Receipt Date: 20150218
  Transmission Date: 20150721
  Serious: No
  Sender: FDA-Public Use
  Company Number: US-ABBVIE-14K-163-1289179-00

PATIENT
  Age: 35 Year
  Sex: Female
  Weight: 172.52 kg

DRUGS (5)
  1. LIALDA [Concomitant]
     Active Substance: MESALAMINE
     Indication: COLITIS ULCERATIVE
  2. BUDESONIDE. [Concomitant]
     Active Substance: BUDESONIDE
     Indication: COLITIS ULCERATIVE
  3. HUMIRA [Suspect]
     Active Substance: ADALIMUMAB
     Indication: COLITIS ULCERATIVE
     Route: 065
     Dates: start: 20140919, end: 20140919
  4. HUMIRA [Suspect]
     Active Substance: ADALIMUMAB
     Route: 065
  5. LEXAPRO [Concomitant]
     Active Substance: ESCITALOPRAM OXALATE
     Indication: DEPRESSION

REACTIONS (5)
  - Drug dose omission [Unknown]
  - Device issue [Unknown]
  - Fatigue [Not Recovered/Not Resolved]
  - Pruritus [Not Recovered/Not Resolved]
  - Oropharyngeal pain [Not Recovered/Not Resolved]

NARRATIVE: CASE EVENT DATE: 201409
